FAERS Safety Report 17781923 (Version 1)
Quarter: 2020Q2

REPORT INFORMATION
  Report Type: Spontaneous
  Country: IT (occurrence: IT)
  Receive Date: 20200513
  Receipt Date: 20200513
  Transmission Date: 20200714
  Serious: Yes (Other)
  Sender: FDA-Public Use
  Company Number: IT-FRESENIUS KABI-FK202004625

PATIENT
  Sex: Female

DRUGS (5)
  1. PARACETAMOL (MANUFACTURER UNKNOWN) [Suspect]
     Active Substance: ACETAMINOPHEN
     Indication: FOETAL EXPOSURE DURING PREGNANCY
     Dosage: 2-4 G/DAY IN THE FIRST TRIMESTER
     Route: 064
  2. LORAZEPAM. [Concomitant]
     Active Substance: LORAZEPAM
     Indication: FOETAL EXPOSURE DURING PREGNANCY
     Dosage: 10 DROPS/DAY
     Route: 064
  3. PARACETAMOL (MANUFACTURER UNKNOWN) [Suspect]
     Active Substance: ACETAMINOPHEN
     Dosage: 1-2 G OCCASIONALLY IN THE SECOND AND THIRD TRIMESTER
     Route: 064
  4. DIAZEPAM. [Concomitant]
     Active Substance: DIAZEPAM
     Indication: FOETAL EXPOSURE DURING PREGNANCY
     Dosage: 1-2 MG/ DAY
     Route: 064
  5. SERTRALINE [Suspect]
     Active Substance: SERTRALINE HYDROCHLORIDE
     Indication: FOETAL EXPOSURE DURING PREGNANCY
     Route: 064

REACTIONS (2)
  - Newborn persistent pulmonary hypertension [Recovered/Resolved]
  - Ductus arteriosus premature closure [Recovered/Resolved]
